FAERS Safety Report 8107531-1 (Version None)
Quarter: 2012Q1

REPORT INFORMATION
  Report Type: 
  Country: None (occurrence: None)
  Receive Date: 20120202
  Receipt Date: 20120124
  Transmission Date: 20120608
  Serious: Yes (Hospitalization)
  Sender: FDA-Public Use
  Company Number: DE-ROCHE-1025764

PATIENT
  Sex: Male
  Weight: 84 kg

DRUGS (6)
  1. PACLITAXEL [Concomitant]
     Indication: NON-SMALL CELL LUNG CANCER
     Route: 042
     Dates: start: 20110217, end: 20110217
  2. ONDANSETRON [Concomitant]
     Indication: PROPHYLAXIS
     Route: 048
     Dates: start: 20110217, end: 20110217
  3. PREDNISONE TAB [Concomitant]
     Indication: PROPHYLAXIS
     Route: 048
     Dates: start: 20110217, end: 20110217
  4. CARBOPLATIN [Concomitant]
     Indication: NON-SMALL CELL LUNG CANCER
     Route: 042
     Dates: start: 20110217, end: 20110217
  5. DEXAMETHASONE [Concomitant]
     Indication: PROPHYLAXIS
     Route: 042
     Dates: start: 20110217, end: 20110217
  6. AVASTIN [Suspect]
     Indication: NON-SMALL CELL LUNG CANCER
     Route: 042
     Dates: start: 20110215

REACTIONS (4)
  - DIVERTICULAR PERFORATION [None]
  - DYSPNOEA [None]
  - TRACHEOBRONCHITIS [None]
  - ILL-DEFINED DISORDER [None]
